FAERS Safety Report 13395323 (Version 1)
Quarter: 2017Q2

REPORT INFORMATION
  Report Type: Spontaneous
  Country: US (occurrence: US)
  Receive Date: 20170403
  Receipt Date: 20170403
  Transmission Date: 20170830
  Serious: No
  Sender: FDA-Public Use
  Company Number: US-PFIZER INC-2017140503

PATIENT
  Age: 63 Year
  Sex: Female
  Weight: 74.83 kg

DRUGS (1)
  1. LORATADINE. [Suspect]
     Active Substance: LORATADINE
     Indication: HYPERSENSITIVITY
     Dosage: 10 MG, 1X/DAY (AT NIGHT)

REACTIONS (2)
  - Intentional product misuse [Unknown]
  - Somnolence [Unknown]
